FAERS Safety Report 9434699 (Version 1)
Quarter: 2013Q3

REPORT INFORMATION
  Report Type: Spontaneous
  Country: MX (occurrence: MX)
  Receive Date: 20130801
  Receipt Date: 20130801
  Transmission Date: 20140515
  Serious: Yes (Death, Hospitalization, Other)
  Sender: FDA-Public Use
  Company Number: MX-GENZYME-FABR-1003460

PATIENT
  Age: 35 Year
  Sex: Male
  Weight: 86.5 kg

DRUGS (1)
  1. FABRAZYME [Suspect]
     Indication: FABRY^S DISEASE
     Dosage: 3 VIALS
     Route: 042
     Dates: start: 20130614, end: 20130712

REACTIONS (6)
  - Device related infection [Unknown]
  - Respiratory arrest [Fatal]
  - Myocardial infarction [Fatal]
  - Pyrexia [Fatal]
  - Aggression [Unknown]
  - Malaise [Unknown]
